FAERS Safety Report 10700091 (Version 2)
Quarter: 2015Q1

REPORT INFORMATION
  Report Type: Spontaneous
  Country: US (occurrence: US)
  Receive Date: 20150109
  Receipt Date: 20150120
  Transmission Date: 20150721
  Serious: Yes (Hospitalization)
  Sender: FDA-Public Use
  Company Number: US-BAYER-2015-002782

PATIENT
  Age: 24 Year
  Sex: Female

DRUGS (6)
  1. YASMIN [Concomitant]
     Active Substance: DROSPIRENONE\ETHINYL ESTRADIOL
  2. ADDERALL [Concomitant]
     Active Substance: AMPHETAMINE ASPARTATE\AMPHETAMINE SULFATE\DEXTROAMPHETAMINE SACCHARATE\DEXTROAMPHETAMINE SULFATE
     Dosage: TWICE A DAY
  3. MIRENA [Suspect]
     Active Substance: LEVONORGESTREL
     Dosage: 20 MCG/24HR, CONT
     Route: 015
     Dates: start: 20050617, end: 20080104
  4. ALBUTEROL. [Concomitant]
     Active Substance: ALBUTEROL
  5. ADDERALL [Concomitant]
     Active Substance: AMPHETAMINE ASPARTATE\AMPHETAMINE SULFATE\DEXTROAMPHETAMINE SACCHARATE\DEXTROAMPHETAMINE SULFATE
     Dosage: 30 MG, QD
  6. LORTAB [Concomitant]
     Active Substance: ACETAMINOPHEN\HYDROCODONE BITARTRATE

REACTIONS (13)
  - Medical device discomfort [None]
  - Anxiety [None]
  - Depressed mood [None]
  - Pelvic pain [None]
  - Emotional distress [None]
  - Abdominal pain [None]
  - Depression [None]
  - Uterine perforation [None]
  - Injury [None]
  - Genital haemorrhage [None]
  - Device issue [None]
  - Fear [None]
  - Internal injury [None]

NARRATIVE: CASE EVENT DATE: 200507
